FAERS Safety Report 9656416 (Version 1)
Quarter: 2013Q4

REPORT INFORMATION
  Report Type: Spontaneous
  Country: US (occurrence: US)
  Receive Date: 20131030
  Receipt Date: 20131030
  Transmission Date: 20140711
  Serious: Yes (Other)
  Sender: FDA-Public Use
  Company Number: US-UCBSA-101565

PATIENT
  Sex: 0

DRUGS (3)
  1. VIMPAT [Suspect]
     Dosage: UNKNOWN DOSE
  2. KEPPRA [Suspect]
     Dosage: UNKNOWN DOSE
  3. LAMOTRAGINE [Suspect]
     Dosage: UNKNOWN DOSE

REACTIONS (7)
  - Convulsion [Unknown]
  - Malaise [Unknown]
  - Headache [Unknown]
  - Adverse drug reaction [Unknown]
  - Migraine [Unknown]
  - Nausea [Unknown]
  - Depression [Unknown]
